FAERS Safety Report 10178703 (Version 2)
Quarter: 2014Q2

REPORT INFORMATION
  Report Type: Report from Study
  Country: US (occurrence: US)
  Receive Date: 20140519
  Receipt Date: 20140613
  Transmission Date: 20141212
  Serious: Yes (Other)
  Sender: FDA-Public Use
  Company Number: US-BIOGENIDEC-2014BI042860

PATIENT
  Age: 65 Year
  Sex: Female

DRUGS (20)
  1. TYSABRI [Suspect]
     Indication: MULTIPLE SCLEROSIS
     Route: 042
     Dates: start: 20110615, end: 20140430
  2. HYDROCODONE/ACETAMINOPHEN [Concomitant]
     Route: 048
  3. PROCHLORPERAZINE [Concomitant]
     Route: 048
  4. ONDANSETRON [Concomitant]
     Route: 048
  5. ADVAIR DISKUS [Concomitant]
  6. IBANDRONATE [Concomitant]
  7. CHLORPROMAZINE [Concomitant]
  8. FEXOFENADINE [Concomitant]
  9. OMEPRAZOLE [Concomitant]
  10. POTASSIUM CHLORIDE [Concomitant]
  11. SIMVASTATIN [Concomitant]
  12. NATEGLINIDE [Concomitant]
  13. BUPROPION [Concomitant]
  14. CYMBALTA [Concomitant]
  15. CARBAMAZEPINE [Concomitant]
  16. TRAZODONE [Concomitant]
  17. GABAPENTIN [Concomitant]
  18. VERAPAMIL [Concomitant]
  19. OXYBUTYNIN [Concomitant]
  20. NADOLOL [Concomitant]

REACTIONS (1)
  - Small cell lung cancer [Not Recovered/Not Resolved]
